FAERS Safety Report 5209696-8 (Version None)
Quarter: 2007Q1

REPORT INFORMATION
  Report Type: 
  Country: None (occurrence: None)
  Receive Date: 20070116
  Receipt Date: 20060120
  Transmission Date: 20070707
  Serious: Yes (Other)
  Sender: FDA-Public Use
  Company Number: US-PFIZER INC-2006027762

PATIENT
  Sex: Female
  Weight: 76.2 kg

DRUGS (14)
  1. BEXTRA [Suspect]
     Indication: ARTHROSCOPIC SURGERY
     Route: 065
     Dates: start: 20040924, end: 20041002
  2. BEXTRA [Suspect]
     Indication: ARTHRALGIA
  3. HYDROCODONE [Concomitant]
     Route: 065
  4. PULMICORT [Concomitant]
     Route: 065
  5. PAXIL [Concomitant]
     Route: 065
  6. CEFZIL [Concomitant]
     Route: 065
  7. TRAZODONE HCL [Concomitant]
     Route: 065
  8. FLONASE [Concomitant]
     Route: 065
  9. ADVAIR DISKUS 100/50 [Concomitant]
     Route: 065
  10. ALBUTEROL [Concomitant]
     Route: 065
  11. PHENERGAN EXPECTORANT W/ CODEINE [Concomitant]
     Route: 065
  12. VICODIN [Concomitant]
     Route: 065
  13. NAPROXEN [Concomitant]
     Route: 048
  14. ESTROVEN [Concomitant]
     Route: 065

REACTIONS (5)
  - DRUG HYPERSENSITIVITY [None]
  - HERPES ZOSTER [None]
  - PRURITUS [None]
  - RASH ERYTHEMATOUS [None]
  - URTICARIA [None]
